FAERS Safety Report 6414218-X (Version None)
Quarter: 2009Q4

REPORT INFORMATION
  Report Type: 
  Country: None (occurrence: None)
  Receive Date: 20091026
  Receipt Date: 20091019
  Transmission Date: 20100525
  Serious: Yes (Life-Threatening, Hospitalization)
  Sender: FDA-Public Use
  Company Number: DE-TYCO HEALTHCARE/MALLINCKRODT-T200901906

PATIENT
  Sex: Female
  Weight: 60 kg

DRUGS (1)
  1. OPTIRAY 350 [Suspect]
     Indication: COMPUTERISED TOMOGRAM
     Dosage: 100 ML, SINGLE
     Route: 042
     Dates: start: 20091019, end: 20091019

REACTIONS (6)
  - CHILLS [None]
  - CIRCULATORY COLLAPSE [None]
  - ORAL PRURITUS [None]
  - PRURITUS [None]
  - URTICARIA [None]
  - VOMITING [None]
